FAERS Safety Report 15005772 (Version 1)
Quarter: 2018Q2

REPORT INFORMATION
  Report Type: Spontaneous
  Country: ES (occurrence: ES)
  Receive Date: 20180613
  Receipt Date: 20180613
  Transmission Date: 20180711
  Serious: Yes (Hospitalization)
  Sender: FDA-Public Use
  Company Number: ES-PFIZER INC-2018238302

PATIENT
  Age: 65 Year
  Sex: Male

DRUGS (4)
  1. ABILIFY [Suspect]
     Active Substance: ARIPIPRAZOLE
     Dosage: 15 MG, 1X/DAY
     Route: 048
     Dates: start: 20180410, end: 20180418
  2. TRANKIMAZIN [Suspect]
     Active Substance: ALPRAZOLAM
     Indication: ANXIETY
     Dosage: 0.5 MG, 2X/DAY
     Route: 048
     Dates: start: 20180410, end: 20180418
  3. DEPRAX /00447702/ [Suspect]
     Active Substance: TRAZODONE HYDROCHLORIDE
     Dosage: 100 MG, 1X/DAY
     Route: 048
     Dates: start: 20180410, end: 20180418
  4. DEPAKINE CRONO /00228502/ [Suspect]
     Active Substance: VALPROIC ACID
     Dosage: 500 MG, 2X/DAY
     Route: 048
     Dates: start: 20180410, end: 20180418

REACTIONS (1)
  - Parkinsonism [Recovered/Resolved]

NARRATIVE: CASE EVENT DATE: 20180418
